FAERS Safety Report 8564965-9 (Version None)
Quarter: 2012Q3

REPORT INFORMATION
  Report Type: 
  Country: None (occurrence: None)
  Receive Date: 20120803
  Receipt Date: 20120726
  Transmission Date: 20120928
  Serious: Yes (Hospitalization, Other)
  Sender: FDA-Public Use
  Company Number: US-009507513-1202USA01572

PATIENT

DRUGS (21)
  1. MK-0152 [Concomitant]
  2. MK-0242 [Concomitant]
     Indication: GASTROOESOPHAGEAL REFLUX DISEASE
  3. NAPROXEN (ALEVE) [Concomitant]
     Indication: ARTHRITIS
  4. FOSAMAX PLUS D [Suspect]
     Indication: OSTEOPOROSIS
     Dosage: 70 MG, UNK
     Route: 048
     Dates: start: 20011206, end: 20080301
  5. ZOCOR [Concomitant]
     Indication: HYPERLIPIDAEMIA
  6. GAS-X [Concomitant]
     Indication: GASTROOESOPHAGEAL REFLUX DISEASE
  7. CALCIUM (UNSPECIFIED) (+) VITAMIN D (UNSPECIFIED) [Concomitant]
     Indication: OSTEOPOROSIS
  8. CELEBREX [Concomitant]
  9. FOSAMAX [Suspect]
     Indication: OSTEOPOROSIS
     Dosage: 70 MG, QW
     Route: 048
     Dates: start: 20011206
  10. MK-0805 [Concomitant]
     Indication: GRAVITATIONAL OEDEMA
  11. ACIPHEX [Concomitant]
  12. ELAVIL [Concomitant]
  13. PREMARIN [Concomitant]
  14. TRIAMTERENE AND HYDROCHLOROTHIAZIDE [Concomitant]
  15. LIPITOR [Concomitant]
     Indication: HYPERLIPIDAEMIA
  16. ALENDRONATE SODIUM [Suspect]
     Indication: OSTEOPOROSIS
     Dosage: UNK
     Route: 048
     Dates: start: 20110621
  17. PRILOSEC [Concomitant]
  18. BENTYL [Concomitant]
     Indication: HYPERLIPIDAEMIA
  19. VOLTAREN [Concomitant]
     Indication: ARTHRITIS
  20. FOSAMAX [Suspect]
     Dosage: 70 MG, UNK
     Dates: start: 20080401, end: 20100401
  21. MK-0805 [Concomitant]

REACTIONS (90)
  - RENAL FAILURE ACUTE [None]
  - LOW TURNOVER OSTEOPATHY [None]
  - PROCEDURAL HAEMORRHAGE [None]
  - ADVERSE DRUG REACTION [None]
  - VAGINAL LEUKOPLAKIA [None]
  - INTERVERTEBRAL DISC PROTRUSION [None]
  - PRURITUS [None]
  - OROPHARYNGEAL PAIN [None]
  - RESPIRATORY DISORDER [None]
  - STASIS DERMATITIS [None]
  - PAPILLOMA [None]
  - DIVERTICULUM [None]
  - PARAESTHESIA [None]
  - ARTERIOSCLEROSIS [None]
  - VERTEBRAL FORAMINAL STENOSIS [None]
  - TRICUSPID VALVE INCOMPETENCE [None]
  - RENAL FAILURE [None]
  - LYMPHOEDEMA [None]
  - HYPOAESTHESIA [None]
  - EXOSTOSIS [None]
  - COUGH [None]
  - AORTIC ARTERIOSCLEROSIS [None]
  - WHEEZING [None]
  - FACET JOINT SYNDROME [None]
  - LEFT ATRIAL DILATATION [None]
  - LEFT VENTRICULAR HYPERTROPHY [None]
  - CEREBROVASCULAR ACCIDENT [None]
  - NERVE COMPRESSION [None]
  - ATELECTASIS [None]
  - ANAEMIA POSTOPERATIVE [None]
  - CAROTID BRUIT [None]
  - RADICULOPATHY [None]
  - BACK INJURY [None]
  - HYPOTENSION [None]
  - SCOLIOSIS [None]
  - DEHYDRATION [None]
  - PERIPHERAL SENSORY NEUROPATHY [None]
  - RIB FRACTURE [None]
  - DEVICE FAILURE [None]
  - NAUSEA [None]
  - CARDIOMEGALY [None]
  - HYPERKERATOSIS [None]
  - NEUROPATHY PERIPHERAL [None]
  - CAROTID ARTERY STENOSIS [None]
  - PAIN IN EXTREMITY [None]
  - PLEURAL EFFUSION [None]
  - APPENDIX DISORDER [None]
  - TONSILLAR DISORDER [None]
  - VENOUS INSUFFICIENCY [None]
  - SECRETION DISCHARGE [None]
  - FEMUR FRACTURE [None]
  - CELLULITIS [None]
  - PERIPHERAL VASCULAR DISORDER [None]
  - PERONEAL NERVE PALSY [None]
  - ANAEMIA [None]
  - MUSCLE SPASMS [None]
  - NASAL CONGESTION [None]
  - KIDNEY MALROTATION [None]
  - FATIGUE [None]
  - SKIN PAPILLOMA [None]
  - AZOTAEMIA [None]
  - ASTHENIA [None]
  - AORTIC VALVE INCOMPETENCE [None]
  - RECTOCELE [None]
  - CYSTOCELE [None]
  - FRACTURE NONUNION [None]
  - BUNDLE BRANCH BLOCK LEFT [None]
  - GASTRITIS [None]
  - URINARY RETENTION [None]
  - NECK PAIN [None]
  - RENAL CYST [None]
  - GASTROINTESTINAL DISORDER [None]
  - ARTHRALGIA [None]
  - BURSITIS [None]
  - HEADACHE [None]
  - WEIGHT DECREASED [None]
  - DYSPNOEA [None]
  - SPINAL OSTEOARTHRITIS [None]
  - URINARY TRACT INFECTION [None]
  - SCIATICA [None]
  - PYREXIA [None]
  - CATARACT [None]
  - VERTIGO [None]
  - VAGINAL ULCERATION [None]
  - SPONDYLITIC MYELOPATHY [None]
  - ELECTROCARDIOGRAM ABNORMAL [None]
  - LUNG INFILTRATION [None]
  - MITRAL VALVE INCOMPETENCE [None]
  - OSTEOPENIA [None]
  - OEDEMA PERIPHERAL [None]
